FAERS Safety Report 16775214 (Version 2)
Quarter: 2019Q3

REPORT INFORMATION
  Report Type: Report from Study
  Country: BE (occurrence: BE)
  Receive Date: 20190905
  Receipt Date: 20190925
  Transmission Date: 20191005
  Serious: Yes (Hospitalization)
  Sender: FDA-Public Use
  Company Number: BE-KARYOPHARM-2019KPT000469

PATIENT
  Sex: Male
  Weight: 70 kg

DRUGS (5)
  1. DEXAMETHASONE. [Suspect]
     Active Substance: DEXAMETHASONE
     Indication: LYMPHOMA
     Dosage: UNK
     Dates: start: 20190812
  2. SELINEXOR [Suspect]
     Active Substance: SELINEXOR
     Indication: LYMPHOMA
     Dosage: 40 MG, WEEKLY
     Route: 048
     Dates: start: 20190812
  3. RITUXIMAB. [Suspect]
     Active Substance: RITUXIMAB
     Indication: LYMPHOMA
     Dosage: UNK
     Dates: start: 20190812
  4. GEMCITABINE. [Suspect]
     Active Substance: GEMCITABINE
     Indication: LYMPHOMA
     Dosage: UNK
     Dates: start: 20190812
  5. CISPLATIN. [Suspect]
     Active Substance: CISPLATIN
     Indication: LYMPHOMA
     Dosage: UNK
     Dates: start: 20190812

REACTIONS (1)
  - Acute kidney injury [Recovered/Resolved]

NARRATIVE: CASE EVENT DATE: 20190819
